FAERS Safety Report 4351271-1 (Version None)
Quarter: 2004Q2

REPORT INFORMATION
  Report Type: 
  Country: None (occurrence: None)
  Receive Date: 20040428
  Receipt Date: 20040413
  Transmission Date: 20050107
  Serious: Yes (Other)
  Sender: FDA-Public Use
  Company Number: USA040464802

PATIENT
  Age: 61 Year
  Sex: Male

DRUGS (7)
  1. XIGRIS [Suspect]
     Indication: INTESTINAL PERFORATION
  2. XIGRIS [Suspect]
     Indication: SEPSIS
  3. MORPHINE [Concomitant]
  4. VERSED [Concomitant]
  5. ANTIBIOTICS [Concomitant]
  6. NOREPINEPHRINE [Concomitant]
  7. DOPAMINE HCL [Concomitant]

REACTIONS (2)
  - PYREXIA [None]
  - RENAL IMPAIRMENT [None]
